FAERS Safety Report 11315192 (Version 2)
Quarter: 2015Q3

REPORT INFORMATION
  Report Type: Spontaneous
  Country: ZA (occurrence: ZA)
  Receive Date: 20150727
  Receipt Date: 20150728
  Transmission Date: 20151125
  Serious: Yes (Other)
  Sender: FDA-Public Use
  Company Number: ZA-009507513-1507ZAF009567

PATIENT
  Age: 19 Year
  Sex: Female
  Weight: 55 kg

DRUGS (14)
  1. ESMERON [Suspect]
     Active Substance: ROCURONIUM BROMIDE
     Indication: GENERAL ANAESTHESIA
     Dosage: 25 MG, (0.45 MG/KG)
     Route: 042
     Dates: start: 20150717
  2. GRANISETRON [Concomitant]
     Active Substance: GRANISETRON
     Route: 042
  3. ACETAMINOPHEN. [Concomitant]
     Active Substance: ACETAMINOPHEN
     Route: 042
  4. GLYCOPYRROLATE. [Concomitant]
     Active Substance: GLYCOPYRROLATE
  5. PROPOFOL. [Suspect]
     Active Substance: PROPOFOL
     Route: 042
  6. DROPERIDOL. [Concomitant]
     Active Substance: DROPERIDOL
  7. DESFLURANE. [Suspect]
     Active Substance: DESFLURANE
  8. LORNOXICAM [Concomitant]
     Active Substance: LORNOXICAM
     Route: 042
  9. EPINEPHRINE. [Concomitant]
     Active Substance: EPINEPHRINE
  10. SUFENTANIL [Suspect]
     Active Substance: SUFENTANIL
     Route: 042
  11. DEXAMETHASONE. [Concomitant]
     Active Substance: DEXAMETHASONE
     Route: 042
  12. OXYGEN. [Concomitant]
     Active Substance: OXYGEN
  13. LIDOCAINE. [Suspect]
     Active Substance: LIDOCAINE
     Route: 042
  14. NEOSTIGMINE METHYLSULFATE. [Concomitant]
     Active Substance: NEOSTIGMINE METHYLSULFATE

REACTIONS (5)
  - Delayed recovery from anaesthesia [Recovered/Resolved]
  - Cough [Recovered/Resolved]
  - Dyspnoea [Recovered/Resolved]
  - Dysphagia [Recovered/Resolved]
  - Muscular weakness [Recovered/Resolved]

NARRATIVE: CASE EVENT DATE: 20150717
